FAERS Safety Report 4636872-5 (Version None)
Quarter: 2005Q2

REPORT INFORMATION
  Report Type: 
  Country: None (occurrence: None)
  Receive Date: 20050413
  Receipt Date: 20050413
  Transmission Date: 20051028
  Serious: Yes (Hospitalization)
  Sender: FDA-Public Use
  Company Number: None

PATIENT
  Age: 81 Year
  Sex: Female
  Weight: 86.2 kg

DRUGS (10)
  1. PROPAFENONE [Suspect]
     Indication: ATRIAL FIBRILLATION
     Dosage: 600MG   ONCE   ORAL
     Route: 048
     Dates: start: 20050404, end: 20050404
  2. DOPAMINE [Suspect]
     Indication: HYPOTENSION
     Dosage: TITRATED    TO KEEP MAP}60    INTRAVENOU
     Route: 042
     Dates: start: 20050404, end: 20050406
  3. DILTIAZEM [Concomitant]
  4. FERROUS SULFATE TAB [Concomitant]
  5. METOPROLOL TARTRATE [Concomitant]
  6. PROTONIX [Concomitant]
  7. DIOVAN [Concomitant]
  8. ASPIRIN [Concomitant]
  9. FUROSEMIDE [Concomitant]
  10. WARFARIN SODIUM [Concomitant]

REACTIONS (10)
  - ANURIA [None]
  - ATRIAL FIBRILLATION [None]
  - BRADYCARDIA [None]
  - CARDIAC ARREST [None]
  - DIALYSIS [None]
  - EXTRASYSTOLES [None]
  - HYPERKALAEMIA [None]
  - HYPOTENSION [None]
  - KNEE ARTHROPLASTY [None]
  - RESPIRATORY ARREST [None]
